FAERS Safety Report 6223584-X (Version None)
Quarter: 2009Q2

REPORT INFORMATION
  Report Type: 
  Country: None (occurrence: None)
  Receive Date: 20090610
  Receipt Date: 20090526
  Transmission Date: 20091009
  Serious: Yes (Hospitalization)
  Sender: FDA-Public Use
  Company Number: 8044970

PATIENT
  Sex: Female
  Weight: 80 kg

DRUGS (7)
  1. KEPPRA [Suspect]
     Indication: PARTIAL SEIZURES
     Dosage: 1.5 G /D
     Dates: start: 20070301
  2. KEPPRA [Suspect]
     Indication: PARTIAL SEIZURES
     Dosage: 2 G /D
  3. KEPPRA [Suspect]
     Indication: PARTIAL SEIZURES
     Dosage: 2.5 G /D PO
     Route: 048
  4. KEPPRA [Suspect]
     Indication: PARTIAL SEIZURES
     Dosage: 2 G /D
     Dates: start: 20081201
  5. KEPPRA [Suspect]
     Indication: PARTIAL SEIZURES
     Dosage: 1.5 G /D, FEW WEEKS
     Dates: start: 20090101
  6. KEPPRA [Suspect]
     Indication: PARTIAL SEIZURES
     Dosage: 1 G /D
     Dates: start: 20090201
  7. LAMICTAL [Concomitant]

REACTIONS (10)
  - ABNORMAL BEHAVIOUR [None]
  - AFFECTIVE DISORDER [None]
  - CONFUSIONAL STATE [None]
  - DEATH OF RELATIVE [None]
  - EMOTIONAL DISTRESS [None]
  - ENCEPHALOPATHY [None]
  - GRAND MAL CONVULSION [None]
  - PETIT MAL EPILEPSY [None]
  - PSYCHOMOTOR RETARDATION [None]
  - TREMOR [None]
